FAERS Safety Report 15288079 (Version 1)
Quarter: 2018Q3

REPORT INFORMATION
  Report Type: Spontaneous
  Country: US (occurrence: US)
  Receive Date: 20180802
  Receipt Date: 20180802
  Transmission Date: 20181010
  Serious: No
  Sender: FDA-Public Use
  Company Number: None

PATIENT
  Age: 28 Year
  Sex: Female

DRUGS (1)
  1. BUPRENORPHINE/NALOXONE 8/2MG [Suspect]
     Active Substance: BUPRENORPHINE HYDROCHLORIDE\NALOXONE HYDROCHLORIDE
     Indication: DRUG DEPENDENCE
     Dosage: ?          OTHER DOSE:8/2 MG;?
     Route: 060
     Dates: start: 201707

REACTIONS (3)
  - Oropharyngeal discolouration [None]
  - Stomatitis [None]
  - Oral mucosal discolouration [None]
